FAERS Safety Report 4433265-0 (Version None)
Quarter: 2004Q3

REPORT INFORMATION
  Report Type: 
  Country: None (occurrence: None)
  Receive Date: 20040824
  Receipt Date: 20040806
  Transmission Date: 20050211
  Serious: Yes (Disabling)
  Sender: FDA-Public Use
  Company Number: B0342408A

PATIENT
  Age: 36 Year
  Sex: Female

DRUGS (3)
  1. EPIVIR [Suspect]
  2. STAVUDINE (FORMULATION UNKNOWN) (STAVUDINE) [Suspect]
  3. NELFINAVIR MESYLATE (FORMULATION UNKNOWN) (NELFINAVIR MESYLATE) [Suspect]

REACTIONS (11)
  - DEMYELINATION [None]
  - DRUG TOXICITY [None]
  - HEPATIC STEATOSIS [None]
  - INFLAMMATION [None]
  - LACTIC ACIDOSIS [None]
  - NEUROMYOPATHY [None]
  - NEUROPATHY PERIPHERAL [None]
  - OEDEMA [None]
  - PANCREATIC ENZYMES INCREASED [None]
  - QUADRIPLEGIA [None]
  - WEIGHT DECREASED [None]
